FAERS Safety Report 6574246-0 (Version None)
Quarter: 2010Q1

REPORT INFORMATION
  Report Type: 
  Country: None (occurrence: None)
  Receive Date: 20100201
  Receipt Date: 20100121
  Transmission Date: 20100710
  Serious: Yes (Death, Congenital Anomaly)
  Sender: FDA-Public Use
  Company Number: DSM-2010-00100

PATIENT
  Age: 6 Month

DRUGS (1)
  1. VOTUM (OLMESARTAN MEDOXOMIL) (OLMESARTAN MEDOXOMIL) [Suspect]
     Indication: DRUG USE FOR UNKNOWN INDICATION
     Dosage: OTHER; AT TIME OF CONCEPTION
     Route: 050

REACTIONS (2)
  - PATERNAL DRUGS AFFECTING FOETUS [None]
  - VENTRICULAR HYPOPLASIA [None]
